FAERS Safety Report 9992294 (Version 1)
Quarter: 2014Q1

REPORT INFORMATION
  Report Type: Spontaneous
  Country: US (occurrence: US)
  Receive Date: 20140310
  Receipt Date: 20140310
  Transmission Date: 20141002
  Serious: Yes (Other)
  Sender: FDA-Public Use
  Company Number: US-JNJFOC-20140217145

PATIENT
  Sex: Female

DRUGS (3)
  1. DOXORUBICIN [Suspect]
     Indication: OVARIAN CANCER RECURRENT
     Dosage: MAXIMUM ALLOWABLE CUMULATIVE DOSE
     Route: 042
  2. DOXORUBICIN [Suspect]
     Indication: OVARIAN CANCER RECURRENT
     Dosage: ON DAY 1
     Route: 042
  3. VINTAFOLIDE [Suspect]
     Indication: OVARIAN CANCER RECURRENT
     Dosage: DURING WEEKS 1 AND 3, EVERY 28 DAYS
     Route: 042

REACTIONS (13)
  - Anaemia [Unknown]
  - Nausea [Unknown]
  - Leukopenia [Unknown]
  - Neutropenia [Unknown]
  - Febrile neutropenia [Unknown]
  - Thrombocytopenia [Unknown]
  - Fatigue [Unknown]
  - Constipation [Unknown]
  - Peripheral sensory neuropathy [Unknown]
  - Abdominal pain [Unknown]
  - Stomatitis [Unknown]
  - Palmar-plantar erythrodysaesthesia syndrome [Unknown]
  - Small intestinal obstruction [Unknown]
